FAERS Safety Report 4747537-3 (Version None)
Quarter: 2005Q3

REPORT INFORMATION
  Report Type: 
  Country: None (occurrence: None)
  Receive Date: 20050816
  Receipt Date: 20050815
  Transmission Date: 20060218
  Serious: Yes (Hospitalization)
  Sender: FDA-Public Use
  Company Number: CHWYE900112AUG05

PATIENT
  Age: 31 Year
  Sex: Female

DRUGS (1)
  1. VENLAFAXINE HCL [Suspect]
     Dosage: 75 MG 18X PER 1 DAY  ORAL
     Route: 048
     Dates: start: 20050702, end: 20050702

REACTIONS (4)
  - DRUG EXPOSURE DURING PREGNANCY [None]
  - INTENTIONAL MISUSE [None]
  - OVERDOSE [None]
  - VOMITING [None]
